FAERS Safety Report 9130234 (Version 2)
Quarter: 2013Q1

REPORT INFORMATION
  Report Type: Spontaneous
  Country: PH (occurrence: PH)
  Receive Date: 20130228
  Receipt Date: 20130313
  Transmission Date: 20140127
  Serious: Yes (Death, Other)
  Sender: FDA-Public Use
  Company Number: PH-009507513-1302PHL012145

PATIENT
  Age: 86 Year
  Sex: Male

DRUGS (1)
  1. COZAAR [Suspect]
     Dosage: 1 DF, QD
     Route: 048

REACTIONS (3)
  - Pneumonia [Fatal]
  - Cardiac disorder [Unknown]
  - Brain cancer metastatic [Unknown]
